FAERS Safety Report 12091972 (Version 2)
Quarter: 2023Q1

REPORT INFORMATION
  Report Type: Spontaneous
  Country: FR (occurrence: FR)
  Receive Date: 20160219
  Receipt Date: 20230331
  Transmission Date: 20230417
  Serious: Yes (Hospitalization)
  Sender: FDA-Public Use
  Company Number: FR-ROCHE-1712655

PATIENT
  Age: 27 Year
  Sex: Female

DRUGS (24)
  1. CELLCEPT [Suspect]
     Active Substance: MYCOPHENOLATE MOFETIL
     Indication: Complications of transplanted heart
     Route: 048
     Dates: start: 20111204, end: 20130221
  2. CERTICAN [Suspect]
     Active Substance: EVEROLIMUS
     Indication: Heart and lung transplant
     Dosage: 1 MG, UNK
     Route: 048
     Dates: start: 20150506, end: 201508
  3. CERTICAN [Suspect]
     Active Substance: EVEROLIMUS
     Route: 065
     Dates: start: 201509
  4. AZATHIOPRINE SODIUM [Suspect]
     Active Substance: AZATHIOPRINE SODIUM
     Indication: Complications of transplanted heart
     Route: 048
     Dates: start: 201508, end: 201509
  5. PREDNISONE [Suspect]
     Active Substance: PREDNISONE
     Indication: Complications of transplanted heart
     Route: 048
     Dates: start: 20111204
  6. TACROLIMUS [Suspect]
     Active Substance: TACROLIMUS
     Indication: Complications of transplanted heart
     Route: 048
     Dates: start: 20111204
  7. URSODIOL [Concomitant]
     Active Substance: URSODIOL
  8. VITAMIN A [Concomitant]
     Active Substance: VITAMIN A
  9. CALTRATE [Concomitant]
     Active Substance: CALCIUM CARBONATE
  10. METEOSPASMYL [Concomitant]
  11. BISOPROLOL [Concomitant]
     Active Substance: BISOPROLOL
  12. APIDRA [Concomitant]
     Active Substance: INSULIN GLULISINE
  13. RENAGEL [Concomitant]
     Active Substance: SEVELAMER HYDROCHLORIDE
  14. AZITHROMYCIN [Concomitant]
     Active Substance: AZITHROMYCIN
  15. ESOMEPRAZOLE [Concomitant]
     Active Substance: ESOMEPRAZOLE
  16. LEUCOVORIN CALCIUM [Concomitant]
     Active Substance: LEUCOVORIN CALCIUM
  17. CREON [Concomitant]
     Active Substance: PANCRELIPASE AMYLASE\PANCRELIPASE LIPASE\PANCRELIPASE PROTEASE
  18. LERCANIDIPINE [Concomitant]
     Active Substance: LERCANIDIPINE
  19. .ALPHA.-TOCOPHEROL ACETATE, D- [Concomitant]
     Active Substance: .ALPHA.-TOCOPHEROL ACETATE, D-
  20. ALBUTEROL [Concomitant]
     Active Substance: ALBUTEROL
  21. POTASSIUM CHLORIDE [Concomitant]
     Active Substance: POTASSIUM CHLORIDE
  22. PRAVASTATIN SODIUM [Concomitant]
     Active Substance: PRAVASTATIN SODIUM
  23. CHOLECALCIFEROL [Concomitant]
     Active Substance: CHOLECALCIFEROL
  24. FERROUS SULFATE [Concomitant]
     Active Substance: FERROUS SULFATE

REACTIONS (3)
  - Bowen^s disease [Not Recovered/Not Resolved]
  - Actinic keratosis [Recovered/Resolved]
  - Actinic keratosis [Recovered/Resolved]

NARRATIVE: CASE EVENT DATE: 20150403
